FAERS Safety Report 6602601-9 (Version None)
Quarter: 2010Q1

REPORT INFORMATION
  Report Type: 
  Country: None (occurrence: None)
  Receive Date: 20100225
  Receipt Date: 20100215
  Transmission Date: 20100710
  Serious: Yes (Other)
  Sender: FDA-Public Use
  Company Number: DE-GILEAD-2009-0022750

PATIENT
  Sex: Male
  Weight: 67 kg

DRUGS (2)
  1. ATRIPLA [Suspect]
     Indication: HIV INFECTION
     Dates: start: 20090312
  2. TRUVADA [Suspect]
     Indication: HIV INFECTION
     Dates: end: 20090301

REACTIONS (2)
  - ANTIVIRAL DRUG LEVEL BELOW THERAPEUTIC [None]
  - VIRAL LOAD INCREASED [None]
